FAERS Safety Report 9805855 (Version 1)
Quarter: 2014Q1

REPORT INFORMATION
  Report Type: Spontaneous
  Country: US (occurrence: US)
  Receive Date: 20140109
  Receipt Date: 20140109
  Transmission Date: 20141002
  Serious: Yes (Death)
  Sender: FDA-Public Use
  Company Number: US-ELI_LILLY_AND_COMPANY-US201312009138

PATIENT
  Sex: 0

DRUGS (4)
  1. GEMCITABINE HYDROCHLORIDE [Suspect]
     Indication: PLASMA CELL MYELOMA
     Dosage: 75 MG/M2, OTHER
     Route: 065
  2. GEMCITABINE HYDROCHLORIDE [Suspect]
     Dosage: 1800 MG/M2, OTHER
     Route: 042
  3. BUSULFAN [Suspect]
     Indication: PLASMA CELL MYELOMA
     Dosage: 4000 DF, QD
     Route: 065
  4. MELPHALAN [Suspect]
     Indication: PLASMA CELL MYELOMA
     Dosage: 60 MG/M2, QD

REACTIONS (1)
  - Pneumonia [Fatal]
